FAERS Safety Report 9885923 (Version 2)
Quarter: 2014Q1

REPORT INFORMATION
  Report Type: Spontaneous
  Country: CA (occurrence: CA)
  Receive Date: 20140210
  Receipt Date: 20140213
  Transmission Date: 20141002
  Serious: Yes (Death)
  Sender: FDA-Public Use
  Company Number: CA-GLAXOSMITHKLINE-A1058361A

PATIENT
  Age: 76 Year
  Sex: Male
  Weight: 77 kg

DRUGS (2)
  1. TAFINLAR [Suspect]
     Indication: METASTATIC MALIGNANT MELANOMA
     Dosage: 150MG TWICE PER DAY
     Route: 048
     Dates: start: 20140122
  2. NYSTATIN [Concomitant]

REACTIONS (10)
  - Chills [Unknown]
  - Decreased appetite [Not Recovered/Not Resolved]
  - Cough [Unknown]
  - Pollakiuria [Recovering/Resolving]
  - Urinary tract infection [Unknown]
  - Asthenia [Not Recovered/Not Resolved]
  - Asthenia [Unknown]
  - Oesophageal candidiasis [Not Recovered/Not Resolved]
  - Fungal infection [Unknown]
  - Death [Fatal]
